FAERS Safety Report 8615118-7 (Version None)
Quarter: 2012Q3

REPORT INFORMATION
  Report Type: 
  Country: None (occurrence: None)
  Receive Date: 20120814
  Receipt Date: 20120814
  Transmission Date: 20120928
  Serious: Yes (Hospitalization)
  Sender: FDA-Public Use
  Company Number: None

PATIENT
  Age: 73 Year
  Sex: Male
  Weight: 107.4 kg

DRUGS (1)
  1. CISPLATIN [Suspect]
     Indication: SALIVARY GLAND CANCER
     Dosage: 168 MG ONCE IV
     Route: 042
     Dates: start: 20120213, end: 20120220

REACTIONS (3)
  - BLOOD CREATININE INCREASED [None]
  - NEPHROPATHY TOXIC [None]
  - BLOOD UREA INCREASED [None]
